FAERS Safety Report 19012078 (Version 1)
Quarter: 2021Q1

REPORT INFORMATION
  Report Type: Spontaneous
  Country: FR (occurrence: FR)
  Receive Date: 20210315
  Receipt Date: 20210315
  Transmission Date: 20210420
  Serious: Yes (Other)
  Sender: FDA-Public Use
  Company Number: FR-TEVA-2021-FR-1889436

PATIENT
  Age: 72 Year
  Sex: Female
  Weight: 64 kg

DRUGS (3)
  1. TECENTRIQ [Suspect]
     Active Substance: ATEZOLIZUMAB
     Indication: NEOPLASM MALIGNANT
     Route: 041
     Dates: start: 201908, end: 20200720
  2. ATORVASTATINE [Suspect]
     Active Substance: ATORVASTATIN
     Indication: ATHEROSCLEROSIS PROPHYLAXIS
     Dosage: UNIT DOSE: 80 MILLIGRAM
     Route: 048
     Dates: start: 20200529, end: 20200831
  3. BEVACIZUMAB ((MAMMIFERE/HAMSTER/CELLULES CHO)) [Suspect]
     Active Substance: BEVACIZUMAB
     Indication: NEOPLASM MALIGNANT
     Route: 041
     Dates: start: 201802, end: 20200720

REACTIONS (2)
  - Hepatocellular injury [Recovering/Resolving]
  - Cholestasis [Recovering/Resolving]

NARRATIVE: CASE EVENT DATE: 20200810
